FAERS Safety Report 7508749-9 (Version None)
Quarter: 2011Q2

REPORT INFORMATION
  Report Type: 
  Country: None (occurrence: None)
  Receive Date: 20110527
  Receipt Date: 20101213
  Transmission Date: 20111010
  Serious: No
  Sender: FDA-Public Use
  Company Number: A0899555A

PATIENT
  Age: 44 Year
  Sex: Female

DRUGS (3)
  1. FLONASE [Concomitant]
  2. VENTOLIN [Suspect]
     Indication: SEASONAL ALLERGY
     Dosage: 2PUFF AS REQUIRED
     Route: 055
     Dates: start: 20090101
  3. XYZAL [Concomitant]

REACTIONS (3)
  - COUGH [None]
  - BRONCHITIS [None]
  - INHALATION THERAPY [None]
